FAERS Safety Report 15507496 (Version 1)
Quarter: 2018Q4

REPORT INFORMATION
  Report Type: Report from Study
  Country: BR (occurrence: BR)
  Receive Date: 20181016
  Receipt Date: 20181016
  Transmission Date: 20190205
  Serious: Yes (Hospitalization, Other)
  Sender: FDA-Public Use
  Company Number: PHHY2018BR123088

PATIENT
  Age: 88 Year
  Sex: Female
  Weight: 53 kg

DRUGS (7)
  1. MONOCORDIL [Concomitant]
     Active Substance: ISOSORBIDE MONONITRATE
     Indication: CARDIAC DISORDER
     Dosage: UNK
     Route: 065
  2. MONOCORDIL [Concomitant]
     Active Substance: ISOSORBIDE MONONITRATE
     Indication: TACHYCARDIA
  3. DIOVAN HCT [Suspect]
     Active Substance: HYDROCHLOROTHIAZIDE\VALSARTAN
     Indication: CARDIAC DISORDER
     Dosage: 1 DF, QD (12.5 MG HYDROCHLORTHIAZIDE, 320 MG VALSARTAN)
     Route: 048
     Dates: end: 20180225
  4. DIOVAN AMLO FIX [Suspect]
     Active Substance: AMLODIPINE\VALSARTAN
     Indication: PRODUCT USED FOR UNKNOWN INDICATION
     Dosage: 1 DF, QD
     Route: 048
     Dates: start: 201802, end: 201805
  5. DIOVAN HCT [Suspect]
     Active Substance: HYDROCHLOROTHIAZIDE\VALSARTAN
     Indication: HYPERTENSION
     Dosage: 1 DF, QD (12.5 MG HYDROCHLORTHIAZIDE, 160 MG VALSARTAN)
     Route: 048
     Dates: start: 20181001
  6. CARVEDILOL. [Suspect]
     Active Substance: CARVEDILOL
     Indication: CARDIAC DISORDER
     Dosage: UNK
     Route: 065
  7. CARVEDILOL. [Suspect]
     Active Substance: CARVEDILOL
     Indication: TACHYCARDIA

REACTIONS (17)
  - Dysphagia [Unknown]
  - Chest pain [Not Recovered/Not Resolved]
  - Cardiac arrest [Unknown]
  - Hypertensive crisis [Not Recovered/Not Resolved]
  - Fall [Unknown]
  - Angina pectoris [Unknown]
  - Bone pain [Unknown]
  - Tachycardia [Unknown]
  - Speech disorder [Unknown]
  - Fatigue [Not Recovered/Not Resolved]
  - Malaise [Not Recovered/Not Resolved]
  - Cardiomegaly [Unknown]
  - Asthenia [Unknown]
  - Limb discomfort [Unknown]
  - Pain in extremity [Unknown]
  - Cerebrovascular accident [Recovered/Resolved]
  - Heart rate irregular [Unknown]

NARRATIVE: CASE EVENT DATE: 20180410
